FAERS Safety Report 11177849 (Version 1)
Quarter: 2015Q2

REPORT INFORMATION
  Report Type: Spontaneous
  Country: US (occurrence: None)
  Receive Date: 20150515
  Receipt Date: 20150515
  Transmission Date: 20150821
  Serious: Yes (Hospitalization)
  Sender: FDA-Public Use
  Company Number: 116653

PATIENT
  Age: 31 Year
  Sex: Female
  Weight: 65.7 kg

DRUGS (2)
  1. CIMZIA [Suspect]
     Active Substance: CERTOLIZUMAB PEGOL
     Indication: CROHN^S DISEASE
     Dosage: 400 MG ONCE EVERY 4 WEEKS
     Dates: start: 20140315
  2. AZATHIOPRINE. [Concomitant]
     Active Substance: AZATHIOPRINE

REACTIONS (3)
  - Dizziness [None]
  - Anxiety [None]
  - Loss of consciousness [None]

NARRATIVE: CASE EVENT DATE: 20140315
